FAERS Safety Report 21097627 (Version 6)
Quarter: 2024Q3

REPORT INFORMATION
  Report Type: Other
  Country: AU (occurrence: AU)
  Receive Date: 20220719
  Receipt Date: 20240926
  Transmission Date: 20241017
  Serious: No
  Sender: TOLMAR
  Company Number: AU-TOLMAR, INC.-22AU035371

PATIENT
  Sex: Male

DRUGS (3)
  1. ELIGARD [Suspect]
     Active Substance: LEUPROLIDE ACETATE
     Indication: Prostate cancer
     Dosage: 22.5 MILLIGRAM, Q 3 MONTH
  2. ELIGARD [Suspect]
     Active Substance: LEUPROLIDE ACETATE
     Dosage: 22.5 MILLIGRAM, Q 3 MONTH
     Dates: start: 20230914
  3. UNSPECIFIED INGREDIENT [Suspect]
     Active Substance: UNSPECIFIED INGREDIENT
     Indication: Product used for unknown indication
     Dosage: UNK

REACTIONS (8)
  - Anxiety [Unknown]
  - Sleep disorder [Not Recovered/Not Resolved]
  - Nightmare [Unknown]
  - Nocturia [Unknown]
  - Dizziness [Unknown]
  - Pollakiuria [Unknown]
  - Hot flush [Recovering/Resolving]
  - Prostatic specific antigen increased [Not Recovered/Not Resolved]
